FAERS Safety Report 13330734 (Version 2)
Quarter: 2018Q2

REPORT INFORMATION
  Report Type: Spontaneous
  Country: US (occurrence: US)
  Receive Date: 20170314
  Receipt Date: 20180419
  Transmission Date: 20180711
  Serious: No
  Sender: FDA-Public Use
  Company Number: US-TEVA-728488ACC

PATIENT
  Sex: Female

DRUGS (1)
  1. OXYCODONE [Suspect]
     Active Substance: OXYCODONE
     Indication: PAIN
     Dosage: 10-325MG
     Route: 065
     Dates: start: 20161010, end: 20161011

REACTIONS (3)
  - Nervousness [Recovered/Resolved]
  - Agitation [Recovered/Resolved]
  - Drug hypersensitivity [Recovered/Resolved]
